FAERS Safety Report 14633572 (Version 1)
Quarter: 2018Q1

REPORT INFORMATION
  Report Type: Report from Study
  Country: None (occurrence: BR)
  Receive Date: 20180314
  Receipt Date: 20180314
  Transmission Date: 20180509
  Serious: Yes (Hospitalization, Other)
  Sender: FDA-Public Use
  Company Number: BR-ABBVIE-17K-020-2174111-00

PATIENT
  Age: 67 Year
  Sex: Female
  Weight: 59 kg

DRUGS (9)
  1. HUMIRA [Suspect]
     Active Substance: ADALIMUMAB
     Indication: RHEUMATOID ARTHRITIS
     Route: 058
     Dates: start: 20170628, end: 20180216
  2. OMEPRAZOLE. [Concomitant]
     Active Substance: OMEPRAZOLE
     Indication: PROPHYLAXIS
  3. CALCIUM [Concomitant]
     Active Substance: CALCIUM
     Indication: MINERAL SUPPLEMENTATION
  4. LEFLUNOMIDE. [Concomitant]
     Active Substance: LEFLUNOMIDE
     Indication: RHEUMATOID ARTHRITIS
  5. FOLIFER [Concomitant]
     Indication: ANAEMIA
  6. LISADOR [Concomitant]
     Active Substance: DIPYRONE\PROMETHAZINE HYDROCHLORIDE
     Indication: SURGERY
     Dosage: SODIUM DIPYRONE, PROMETHAZINE HYDROCHLORIDE AND ADIPHENINE HYDROCHLORIDE
  7. CLEXANE [Concomitant]
     Active Substance: ENOXAPARIN SODIUM
     Indication: SURGERY
  8. FLANCOX [Concomitant]
     Active Substance: ETODOLAC
     Indication: SURGERY
  9. CIPRO [Concomitant]
     Active Substance: CIPROFLOXACIN HYDROCHLORIDE
     Indication: SURGERY

REACTIONS (6)
  - Arthralgia [Recovered/Resolved]
  - Arthralgia [Unknown]
  - Feeling hot [Not Recovered/Not Resolved]
  - Wound secretion [Not Recovered/Not Resolved]
  - Postoperative wound complication [Not Recovered/Not Resolved]
  - Postoperative wound infection [Not Recovered/Not Resolved]

NARRATIVE: CASE EVENT DATE: 2017
